FAERS Safety Report 6410290-1 (Version None)
Quarter: 2009Q4

REPORT INFORMATION
  Report Type: 
  Country: None (occurrence: None)
  Receive Date: 20091022
  Receipt Date: 20091014
  Transmission Date: 20100525
  Serious: Yes (Hospitalization)
  Sender: FDA-Public Use
  Company Number: B0595950A

PATIENT
  Sex: Female
  Weight: 69.9 kg

DRUGS (11)
  1. LAPATINIB [Suspect]
     Route: 048
     Dates: start: 20090609
  2. XELODA [Suspect]
     Route: 048
     Dates: start: 20090609
  3. OMEPRAZOLE [Concomitant]
  4. DOMPERIDONE [Concomitant]
     Dosage: 10MG THREE TIMES PER DAY
     Route: 048
  5. DEXAMETHASONE 0.5MG TAB [Concomitant]
     Dosage: 8MG PER DAY
     Route: 048
  6. AMLODIPINE [Concomitant]
     Dosage: 10MG PER DAY
     Route: 048
  7. TRAMADOL HCL [Concomitant]
     Dosage: 100MG THREE TIMES PER DAY
     Route: 048
  8. PARACETAMOL [Concomitant]
     Dosage: 1G AS REQUIRED
     Route: 048
  9. STEMETIL [Concomitant]
     Dosage: 5MG AS REQUIRED
     Route: 048
  10. ZOPICLONE [Concomitant]
     Dosage: 75MG PER DAY
     Route: 048
  11. SLOW POTASSIUM [Concomitant]

REACTIONS (3)
  - DEEP VEIN THROMBOSIS [None]
  - FATIGUE [None]
  - INFECTION [None]
